FAERS Safety Report 7328307-9 (Version None)
Quarter: 2011Q1

REPORT INFORMATION
  Report Type: 
  Country: None (occurrence: None)
  Receive Date: 20110222
  Receipt Date: 20110207
  Transmission Date: 20110831
  Serious: Yes (Other)
  Sender: FDA-Public Use
  Company Number: AUR-APL-2011-00504

PATIENT
  Age: 15 Year
  Sex: Female

DRUGS (4)
  1. CLONIDINE [Suspect]
     Dosage: ORAL
     Route: 048
  2. TRAZODONE [Suspect]
     Dosage: ORAL
     Route: 048
  3. RISPERDONE [Suspect]
     Dosage: ORAL
     Route: 048
  4. QUETIAPINE [Suspect]
     Dosage: ORAL
     Route: 048

REACTIONS (10)
  - HYPOTENSION [None]
  - TEARFULNESS [None]
  - LETHARGY [None]
  - ELECTROCARDIOGRAM QT PROLONGED [None]
  - UNRESPONSIVE TO STIMULI [None]
  - SOMNOLENCE [None]
  - MULTIPLE DRUG OVERDOSE [None]
  - DELIRIUM [None]
  - SPEECH DISORDER [None]
  - QRS AXIS ABNORMAL [None]
